FAERS Safety Report 6084741-9 (Version None)
Quarter: 2009Q1

REPORT INFORMATION
  Report Type: 
  Country: None (occurrence: None)
  Receive Date: 20090217
  Receipt Date: 20090202
  Transmission Date: 20090719
  Serious: Yes (Hospitalization)
  Sender: FDA-Public Use
  Company Number: FR-1168541

PATIENT
  Sex: Male

DRUGS (2)
  1. AZOPT           (BRINZOLAMIDE) 1 % OPHTHALMIC SUSPENSION EYE DROPS, [Suspect]
     Indication: INTRAOCULAR PRESSURE INCREASED
     Dosage: OPHTHALMIC
     Route: 047
  2. XALATAN [Concomitant]

REACTIONS (1)
  - ACUTE RESPIRATORY FAILURE [None]
